FAERS Safety Report 8150698-X (Version None)
Quarter: 2012Q1

REPORT INFORMATION
  Report Type: 
  Country: None (occurrence: None)
  Receive Date: 20120220
  Receipt Date: 20120216
  Transmission Date: 20120608
  Serious: Yes (Hospitalization, Other)
  Sender: FDA-Public Use
  Company Number: DE-AMGEN-DEUSP2011067352

PATIENT
  Sex: Female

DRUGS (2)
  1. ARANESP [Suspect]
     Indication: RENAL FAILURE CHRONIC
     Dosage: 60 MUG, ONE TIME DOSE
     Dates: start: 20111215, end: 20111215
  2. ARANESP [Suspect]
     Dosage: 60 MUG, QD
     Dates: start: 20111218, end: 20111219

REACTIONS (5)
  - ATRIAL THROMBOSIS [None]
  - INAPPROPRIATE SCHEDULE OF DRUG ADMINISTRATION [None]
  - HAEMOGLOBIN DECREASED [None]
  - TRACHEAL DISORDER [None]
  - HAEMORRHAGE [None]
